FAERS Safety Report 26217199 (Version 1)
Quarter: 2025Q4

REPORT INFORMATION
  Report Type: Report from Study
  Country: GB (occurrence: GB)
  Receive Date: 20251231
  Receipt Date: 20251231
  Transmission Date: 20260117
  Serious: Yes (Other)
  Sender: ABBVIE
  Company Number: GB-ABBVIE-6610424

PATIENT
  Sex: Female

DRUGS (1)
  1. RINVOQ [Suspect]
     Active Substance: UPADACITINIB
     Indication: Product used for unknown indication
     Dosage: RINVOQ MODERATE 15MG TABLET 28
     Route: 048

REACTIONS (2)
  - Surgery [Unknown]
  - Wound dehiscence [Not Recovered/Not Resolved]
